FAERS Safety Report 15343572 (Version 1)
Quarter: 2018Q3

REPORT INFORMATION
  Report Type: Spontaneous
  Country: US (occurrence: US)
  Receive Date: 20180903
  Receipt Date: 20180903
  Transmission Date: 20181010
  Serious: No
  Sender: FDA-Public Use
  Company Number: US-PFIZER INC-2018348007

PATIENT
  Sex: Male

DRUGS (1)
  1. TESTOSTERONE CIPIONATE [Suspect]
     Active Substance: TESTOSTERONE
     Dosage: UNK, WEEKLY (DOSE IS LESS THAN1 ML)

REACTIONS (4)
  - Energy increased [Unknown]
  - Libido increased [Unknown]
  - Intentional product misuse [Unknown]
  - Hypertonia [Unknown]
